FAERS Safety Report 18479650 (Version 1)
Quarter: 2020Q4

REPORT INFORMATION
  Report Type: Spontaneous
  Country: US (occurrence: US)
  Receive Date: 20201107
  Receipt Date: 20201107
  Transmission Date: 20210114
  Serious: Yes (Other)
  Sender: FDA-Public Use
  Company Number: None

PATIENT
  Age: 80 Year
  Sex: Female

DRUGS (5)
  1. ALBUTEROL. [Concomitant]
     Active Substance: ALBUTEROL
  2. ASPIRIN 81 MG [Concomitant]
     Active Substance: ASPIRIN
  3. URELLE [Suspect]
     Active Substance: HYOSCYAMINE SULFATE\METHENAMINE\METHYLENE BLUE\PHENYL SALICYLATE\SODIUM PHOSPHATE, MONOBASIC, MONOHYDRATE
     Indication: POLLAKIURIA
     Route: 048
     Dates: start: 20201020, end: 20201021
  4. DILTIAZEM. [Concomitant]
     Active Substance: DILTIAZEM
  5. SPIRONOLACTONE. [Concomitant]
     Active Substance: SPIRONOLACTONE

REACTIONS (3)
  - Swelling face [None]
  - Faeces discoloured [None]
  - Melaena [None]

NARRATIVE: CASE EVENT DATE: 20201020
